FAERS Safety Report 7568488-5 (Version None)
Quarter: 2011Q2

REPORT INFORMATION
  Report Type: 
  Country: None (occurrence: None)
  Receive Date: 20110617
  Receipt Date: 20110605
  Transmission Date: 20111010
  Serious: Yes (Other)
  Sender: FDA-Public Use
  Company Number: GB-DEXPHARM-20110740

PATIENT
  Age: 42 Year
  Sex: Male

DRUGS (6)
  1. MULTI-VITAMINS [Concomitant]
  2. SANDO-K [Concomitant]
  3. THIAMINE [Concomitant]
  4. OMEPRAZOLE [Suspect]
     Dosage: 40 MG, ORAL
     Route: 048
     Dates: start: 20110421, end: 20110517
  5. LACTULOSE [Concomitant]
  6. VITAMIN B [Concomitant]

REACTIONS (6)
  - LYMPHOPENIA [None]
  - DRUG RASH WITH EOSINOPHILIA AND SYSTEMIC SYMPTOMS [None]
  - VASCULITIC RASH [None]
  - RENAL FAILURE [None]
  - CONFUSIONAL STATE [None]
  - EOSINOPHILIA [None]
